FAERS Safety Report 6818836-6 (Version None)
Quarter: 2010Q2

REPORT INFORMATION
  Report Type: 
  Country: None (occurrence: None)
  Receive Date: 20100630
  Receipt Date: 20100614
  Transmission Date: 20101027
  Serious: Yes (Hospitalization)
  Sender: FDA-Public Use
  Company Number: B0661730A

PATIENT
  Age: 24 Month
  Sex: Male

DRUGS (2)
  1. LAMOTRIGINE [Suspect]
     Indication: DRUG USE FOR UNKNOWN INDICATION
     Dosage: 3 TABLET   / ORAL
     Route: 048
  2. MULTI-VITAMINS [Concomitant]

REACTIONS (10)
  - CONVULSION [None]
  - DRUG TOXICITY [None]
  - HYPERREFLEXIA [None]
  - IRRITABILITY [None]
  - MUSCLE TWITCHING [None]
  - NYSTAGMUS [None]
  - OVERDOSE [None]
  - RESPIRATORY RATE INCREASED [None]
  - SOMNOLENCE [None]
  - VOMITING [None]
